FAERS Safety Report 17072695 (Version 1)
Quarter: 2019Q4

REPORT INFORMATION
  Report Type: Spontaneous
  Country: US (occurrence: US)
  Receive Date: 20191028
  Receipt Date: 20191028
  Transmission Date: 20200122
  Serious: No
  Sender: FDA-Public Use
  Company Number: None

PATIENT

DRUGS (1)
  1. HYDROCODONE BITARTRATE AND IBUPROFEN [Suspect]
     Active Substance: HYDROCODONE BITARTRATE\IBUPROFEN

REACTIONS (1)
  - Product dispensing error [None]

NARRATIVE: CASE EVENT DATE: 2019
